FAERS Safety Report 6431871-5 (Version None)
Quarter: 2009Q4

REPORT INFORMATION
  Report Type: 
  Country: None (occurrence: None)
  Receive Date: 20091109
  Receipt Date: 20091028
  Transmission Date: 20100525
  Serious: Yes (Other)
  Sender: FDA-Public Use
  Company Number: ZA-RANBAXY-2009RR-28935

PATIENT
  Age: 2 Year
  Sex: Male

DRUGS (3)
  1. PARACETAMOL [Suspect]
     Indication: UPPER RESPIRATORY TRACT INFECTION
     Dosage: UNK
  2. COTRIM [Suspect]
     Indication: UPPER RESPIRATORY TRACT INFECTION
  3. DIPHENHYDRAMINE [Suspect]
     Indication: UPPER RESPIRATORY TRACT INFECTION

REACTIONS (1)
  - DRUG ERUPTION [None]
